FAERS Safety Report 12282011 (Version 3)
Quarter: 2016Q2

REPORT INFORMATION
  Report Type: Spontaneous
  Country: US (occurrence: US)
  Receive Date: 20160419
  Receipt Date: 20160615
  Transmission Date: 20160815
  Serious: No
  Sender: FDA-Public Use
  Company Number: US-ACTELION PHARMACEUTICALS US, INC.-A-NJ2016-134474

PATIENT
  Age: 84 Year
  Sex: Female

DRUGS (2)
  1. OPSUMIT [Suspect]
     Active Substance: MACITENTAN
     Indication: PULMONARY ARTERIAL HYPERTENSION
     Dosage: 10 MG, QD
     Route: 048
     Dates: start: 20150828
  2. CEFPODOXIME [Suspect]
     Active Substance: CEFPODOXIME
     Indication: URINARY TRACT INFECTION
     Route: 065

REACTIONS (7)
  - Candida infection [Unknown]
  - Urinary tract infection [Unknown]
  - Dyspnoea [Unknown]
  - Pyrexia [Unknown]
  - Nausea [Unknown]
  - Ulcer [Unknown]
  - Hypotension [Unknown]
